FAERS Safety Report 25128404 (Version 1)
Quarter: 2025Q1

REPORT INFORMATION
  Report Type: Spontaneous
  Country: US (occurrence: None)
  Receive Date: 20250326
  Receipt Date: 20250326
  Transmission Date: 20250409
  Serious: Yes (Hospitalization)
  Sender: FDA-CTU
  Company Number: None

PATIENT
  Age: 63 Year
  Sex: Male

DRUGS (1)
  1. HARVONI [Suspect]
     Active Substance: LEDIPASVIR\SOFOSBUVIR
     Indication: Hepatitis C
     Dosage: OTHER QUANTITY : 90/400;?FREQUENCY : DAILY;?

REACTIONS (4)
  - Epistaxis [None]
  - Pyrexia [None]
  - Blood sodium decreased [None]
  - Abdominal distension [None]
